FAERS Safety Report 20923496 (Version 2)
Quarter: 2022Q3

REPORT INFORMATION
  Report Type: Spontaneous
  Country: AU (occurrence: AU)
  Receive Date: 20220607
  Receipt Date: 20220706
  Transmission Date: 20221026
  Serious: Yes (Other)
  Sender: FDA-Public Use
  Company Number: AU-ASTELLAS-2022US020046

PATIENT
  Age: 71 Year
  Sex: Male

DRUGS (1)
  1. XTANDI [Suspect]
     Active Substance: ENZALUTAMIDE
     Indication: Prostate cancer
     Dosage: 40 MG, ONCE DAILY (TAKING 4 CAPSULES OF XTANDI 40MG ONCE A DAY AT AROUND 6PM EVERYDAY)
     Route: 065
     Dates: start: 202204

REACTIONS (7)
  - Foreign body in throat [Unknown]
  - Abdominal discomfort [Unknown]
  - Ulcer [Unknown]
  - Feeling drunk [Recovering/Resolving]
  - Feeling abnormal [Recovering/Resolving]
  - Dizziness [Recovering/Resolving]
  - Product use complaint [Unknown]
